FAERS Safety Report 7961283-4 (Version None)
Quarter: 2011Q4

REPORT INFORMATION
  Report Type: 
  Country: None (occurrence: None)
  Receive Date: 20111201
  Receipt Date: 20111201
  Transmission Date: 20120403
  Serious: Yes (Hospitalization)
  Sender: FDA-Public Use
  Company Number: None

PATIENT
  Age: 50 Year
  Sex: Female
  Weight: 78 kg

DRUGS (2)
  1. METHOXYAMINE 15 MG/M2 EVERY 28 DAYS [Suspect]
     Indication: OVARIAN CANCER
     Dosage: 2704 MG IV
     Route: 042
     Dates: start: 20111117
  2. TEMOZOLOMIDE [Suspect]
     Indication: OVARIAN CANCER
     Dosage: 280 MG PL
     Dates: start: 20111117, end: 20111118

REACTIONS (11)
  - BACTERIAL TEST POSITIVE [None]
  - VOMITING [None]
  - METASTASES TO PERITONEUM [None]
  - TUMOUR NECROSIS [None]
  - URINE LEUKOCYTE ESTERASE POSITIVE [None]
  - WHITE BLOOD CELLS URINE POSITIVE [None]
  - SMALL INTESTINAL OBSTRUCTION [None]
  - LACTOBACILLUS TEST POSITIVE [None]
  - HAEMOGLOBIN URINE PRESENT [None]
  - ABDOMINAL PAIN [None]
  - NAUSEA [None]
